FAERS Safety Report 6522707-2 (Version None)
Quarter: 2009Q4

REPORT INFORMATION
  Report Type: 
  Country: None (occurrence: None)
  Receive Date: 20091230
  Receipt Date: 20091215
  Transmission Date: 20100525
  Serious: No
  Sender: FDA-Public Use
  Company Number: US-B.I. PHARMACEUTICALS,INC./RIDGEFIELD-2009-BP-14397BP

PATIENT
  Age: 66 Year
  Sex: Male

DRUGS (1)
  1. FLOMAX [Suspect]
     Indication: PROSTATITIS
     Dosage: 0.4 MG
     Route: 048
     Dates: start: 20091208, end: 20091208

REACTIONS (1)
  - PALPITATIONS [None]
